FAERS Safety Report 26092314 (Version 1)
Quarter: 2025Q4

REPORT INFORMATION
  Report Type: Spontaneous
  Country: EU (occurrence: EU)
  Receive Date: 20251126
  Receipt Date: 20251126
  Transmission Date: 20260119
  Serious: Yes (Hospitalization, Other)
  Sender: MYLAN
  Company Number: EU-KRKA-DE2025K19907SPO

PATIENT
  Age: 34 Year
  Sex: Male
  Weight: 65 kg

DRUGS (28)
  1. ACETAMINOPHEN [Suspect]
     Active Substance: ACETAMINOPHEN
     Indication: Product used for unknown indication
     Dosage: 5000 MILLIGRAM, TOTAL (UP TO 5000 UNK, TOTAL)
     Dates: start: 20251029, end: 20251029
  2. ACETAMINOPHEN [Suspect]
     Active Substance: ACETAMINOPHEN
     Dosage: 5000 MILLIGRAM, TOTAL (UP TO 5000 UNK, TOTAL)
     Route: 048
     Dates: start: 20251029, end: 20251029
  3. ACETAMINOPHEN [Suspect]
     Active Substance: ACETAMINOPHEN
     Dosage: 5000 MILLIGRAM, TOTAL (UP TO 5000 UNK, TOTAL)
     Route: 048
     Dates: start: 20251029, end: 20251029
  4. ACETAMINOPHEN [Suspect]
     Active Substance: ACETAMINOPHEN
     Dosage: 5000 MILLIGRAM, TOTAL (UP TO 5000 UNK, TOTAL)
     Dates: start: 20251029, end: 20251029
  5. VENLAFAXINE [Suspect]
     Active Substance: VENLAFAXINE HYDROCHLORIDE
     Indication: Product used for unknown indication
     Dosage: 1050 MILLIGRAM, TOTAL (UP TO 1050 MG, TOTAL)
     Dates: start: 20251029, end: 20251029
  6. VENLAFAXINE [Suspect]
     Active Substance: VENLAFAXINE HYDROCHLORIDE
     Dosage: 1050 MILLIGRAM, TOTAL (UP TO 1050 MG, TOTAL)
     Route: 048
     Dates: start: 20251029, end: 20251029
  7. VENLAFAXINE [Suspect]
     Active Substance: VENLAFAXINE HYDROCHLORIDE
     Dosage: 1050 MILLIGRAM, TOTAL (UP TO 1050 MG, TOTAL)
     Route: 048
     Dates: start: 20251029, end: 20251029
  8. VENLAFAXINE [Suspect]
     Active Substance: VENLAFAXINE HYDROCHLORIDE
     Dosage: 1050 MILLIGRAM, TOTAL (UP TO 1050 MG, TOTAL)
     Dates: start: 20251029, end: 20251029
  9. MELOXICAM [Suspect]
     Active Substance: MELOXICAM
     Indication: Product used for unknown indication
     Dosage: 75 MILLIGRAM, TOTAL (UP TO 75 MG, TOTAL)
     Dates: start: 20251029, end: 20251029
  10. MELOXICAM [Suspect]
     Active Substance: MELOXICAM
     Dosage: 75 MILLIGRAM, TOTAL (UP TO 75 MG, TOTAL)
     Route: 048
     Dates: start: 20251029, end: 20251029
  11. MELOXICAM [Suspect]
     Active Substance: MELOXICAM
     Dosage: 75 MILLIGRAM, TOTAL (UP TO 75 MG, TOTAL)
     Route: 048
     Dates: start: 20251029, end: 20251029
  12. MELOXICAM [Suspect]
     Active Substance: MELOXICAM
     Dosage: 75 MILLIGRAM, TOTAL (UP TO 75 MG, TOTAL)
     Dates: start: 20251029, end: 20251029
  13. ACETAMINOPHEN\TRAMADOL [Suspect]
     Active Substance: ACETAMINOPHEN\TRAMADOL
     Indication: Product used for unknown indication
     Dosage: 10 DOSAGE FORM, TOTAL (UP TO 10 DOSAGE FORM, TOTAL)
     Dates: start: 20251029, end: 20251029
  14. ACETAMINOPHEN\TRAMADOL [Suspect]
     Active Substance: ACETAMINOPHEN\TRAMADOL
     Dosage: 10 DOSAGE FORM, TOTAL (UP TO 10 DOSAGE FORM, TOTAL)
     Route: 048
     Dates: start: 20251029, end: 20251029
  15. ACETAMINOPHEN\TRAMADOL [Suspect]
     Active Substance: ACETAMINOPHEN\TRAMADOL
     Dosage: 10 DOSAGE FORM, TOTAL (UP TO 10 DOSAGE FORM, TOTAL)
     Route: 048
     Dates: start: 20251029, end: 20251029
  16. ACETAMINOPHEN\TRAMADOL [Suspect]
     Active Substance: ACETAMINOPHEN\TRAMADOL
     Dosage: 10 DOSAGE FORM, TOTAL (UP TO 10 DOSAGE FORM, TOTAL)
     Dates: start: 20251029, end: 20251029
  17. SITAGLIPTIN [Suspect]
     Active Substance: SITAGLIPTIN
     Indication: Product used for unknown indication
     Dosage: 1500 MILLIGRAM, TOTAL (UP TO 1500 MG, TOTAL)
     Dates: start: 20251029, end: 20251029
  18. SITAGLIPTIN [Suspect]
     Active Substance: SITAGLIPTIN
     Dosage: 1500 MILLIGRAM, TOTAL (UP TO 1500 MG, TOTAL)
     Route: 048
     Dates: start: 20251029, end: 20251029
  19. SITAGLIPTIN [Suspect]
     Active Substance: SITAGLIPTIN
     Dosage: 1500 MILLIGRAM, TOTAL (UP TO 1500 MG, TOTAL)
     Route: 048
     Dates: start: 20251029, end: 20251029
  20. SITAGLIPTIN [Suspect]
     Active Substance: SITAGLIPTIN
     Dosage: 1500 MILLIGRAM, TOTAL (UP TO 1500 MG, TOTAL)
     Dates: start: 20251029, end: 20251029
  21. IBUPROFEN [Suspect]
     Active Substance: IBUPROFEN
     Indication: Product used for unknown indication
     Dosage: 4000 MILLIGRAM, TOTAL (UP TO 4000 MG, TOTAL)
     Dates: start: 20251029, end: 20251029
  22. IBUPROFEN [Suspect]
     Active Substance: IBUPROFEN
     Dosage: 4000 MILLIGRAM, TOTAL (UP TO 4000 MG, TOTAL)
     Route: 048
     Dates: start: 20251029, end: 20251029
  23. IBUPROFEN [Suspect]
     Active Substance: IBUPROFEN
     Dosage: 4000 MILLIGRAM, TOTAL (UP TO 4000 MG, TOTAL)
     Route: 048
     Dates: start: 20251029, end: 20251029
  24. IBUPROFEN [Suspect]
     Active Substance: IBUPROFEN
     Dosage: 4000 MILLIGRAM, TOTAL (UP TO 4000 MG, TOTAL)
     Dates: start: 20251029, end: 20251029
  25. IBUPROFEN [Suspect]
     Active Substance: IBUPROFEN
     Indication: Product used for unknown indication
     Dosage: 8000 MILLIGRAM, TOTAL (UP TO 8000 MG, TOTAL)
     Dates: start: 20251029, end: 20251029
  26. IBUPROFEN [Suspect]
     Active Substance: IBUPROFEN
     Dosage: 8000 MILLIGRAM, TOTAL (UP TO 8000 MG, TOTAL)
     Route: 048
     Dates: start: 20251029, end: 20251029
  27. IBUPROFEN [Suspect]
     Active Substance: IBUPROFEN
     Dosage: 8000 MILLIGRAM, TOTAL (UP TO 8000 MG, TOTAL)
     Route: 048
     Dates: start: 20251029, end: 20251029
  28. IBUPROFEN [Suspect]
     Active Substance: IBUPROFEN
     Dosage: 8000 MILLIGRAM, TOTAL (UP TO 8000 MG, TOTAL)
     Dates: start: 20251029, end: 20251029

REACTIONS (3)
  - Tachycardia [Recovered/Resolved]
  - Suicide attempt [Recovered/Resolved]
  - Intentional overdose [Recovered/Resolved]

NARRATIVE: CASE EVENT DATE: 20251029
